FAERS Safety Report 8583914-0 (Version None)
Quarter: 2012Q3

REPORT INFORMATION
  Report Type: 
  Country: None (occurrence: None)
  Receive Date: 20120810
  Receipt Date: 20120702
  Transmission Date: 20120928
  Serious: No
  Sender: FDA-Public Use
  Company Number: US-009507513-1207USA001532

PATIENT

DRUGS (1)
  1. AZASITE [Suspect]
     Dosage: 1 DROP, QD PER EYE
     Route: 031
     Dates: start: 20120101

REACTIONS (2)
  - ACCIDENTAL OVERDOSE [None]
  - NO ADVERSE EVENT [None]
